FAERS Safety Report 9229117 (Version 1)
Quarter: 2013Q2

REPORT INFORMATION
  Report Type: Spontaneous
  Country: BR (occurrence: BR)
  Receive Date: 20130412
  Receipt Date: 20130412
  Transmission Date: 20140414
  Serious: Yes (Other)
  Sender: FDA-Public Use
  Company Number: BR-ACTAVIS-2013-05796

PATIENT
  Age: 63 Year
  Sex: Male

DRUGS (2)
  1. AMANTADINE HCL (AMALLC) [Suspect]
     Indication: DYSKINESIA
     Dosage: UNK
     Route: 065
  2. LEVODOPA [Concomitant]
     Indication: PARKINSON^S DISEASE
     Dosage: UNK
     Route: 065

REACTIONS (2)
  - Hallucination, visual [Unknown]
  - Condition aggravated [Unknown]
